FAERS Safety Report 25605030 (Version 1)
Quarter: 2025Q3

REPORT INFORMATION
  Report Type: Spontaneous
  Country: US (occurrence: US)
  Receive Date: 20250725
  Receipt Date: 20250725
  Transmission Date: 20251021
  Serious: Yes (Life-Threatening, Hospitalization, Other)
  Sender: Unknown Manufacturer
  Company Number: US-862174955-ML2025-03670

PATIENT
  Age: 60 Year
  Sex: Female

DRUGS (3)
  1. BUPROPION [Suspect]
     Active Substance: BUPROPION
     Indication: Product used for unknown indication
  2. GABAPENTIN [Suspect]
     Active Substance: GABAPENTIN
     Indication: Product used for unknown indication
  3. QUETIAPINE [Suspect]
     Active Substance: QUETIAPINE
     Indication: Product used for unknown indication

REACTIONS (10)
  - Lactic acidosis [Unknown]
  - Areflexia [Recovered/Resolved]
  - Toxicity to various agents [Unknown]
  - Neurotoxicity [Recovering/Resolving]
  - Intentional overdose [Unknown]
  - Shock [Recovered/Resolved]
  - Cerebrovascular accident [Unknown]
  - Seizure [Recovered/Resolved]
  - Coma [Recovered/Resolved]
  - Hypotension [Unknown]
